FAERS Safety Report 10485755 (Version 7)
Quarter: 2015Q3

REPORT INFORMATION
  Report Type: Report from Study
  Country: FR (occurrence: FR)
  Receive Date: 20141001
  Receipt Date: 20150914
  Transmission Date: 20151125
  Serious: Yes (Other)
  Sender: FDA-Public Use
  Company Number: FR-ROCHE-1466112

PATIENT
  Age: 73 Year
  Sex: Male
  Weight: 71 kg

DRUGS (53)
  1. OBINUTUZUMAB [Suspect]
     Active Substance: OBINUTUZUMAB
     Dosage: C1D2
     Route: 042
     Dates: start: 20140129, end: 20140129
  2. BENDAMUSTINE [Suspect]
     Active Substance: BENDAMUSTINE
     Indication: CHRONIC LYMPHOCYTIC LEUKAEMIA
     Dosage: C1D1 (160 MG)?LAST DOSE PRIOR TO SAE: 17/JUN/2014
     Route: 042
     Dates: start: 20140128, end: 20140128
  3. BENDAMUSTINE [Suspect]
     Active Substance: BENDAMUSTINE
     Dosage: C6D2
     Route: 042
     Dates: start: 20140617, end: 20140617
  4. STAGID [Concomitant]
     Active Substance: METFORMIN PAMOATE
     Route: 048
     Dates: start: 20140129, end: 20140130
  5. POLARAMINE [Concomitant]
     Active Substance: DEXCHLORPHENIRAMINE MALEATE
     Indication: PROPHYLAXIS
     Route: 042
     Dates: start: 20140128, end: 20140616
  6. PLAVIX [Concomitant]
     Active Substance: CLOPIDOGREL BISULFATE
     Indication: MYOCARDIAL INFARCTION
     Route: 048
  7. PARACETAMOL [Concomitant]
     Active Substance: ACETAMINOPHEN
     Indication: PROPHYLAXIS
     Route: 042
     Dates: start: 20140128, end: 20140616
  8. ZELITREX [Concomitant]
     Active Substance: VALACYCLOVIR HYDROCHLORIDE
     Indication: PROPHYLAXIS
     Route: 048
     Dates: start: 20140206, end: 20140422
  9. DAFALGAN [Concomitant]
     Active Substance: ACETAMINOPHEN
     Route: 042
     Dates: start: 20140211, end: 20140211
  10. OBINUTUZUMAB [Suspect]
     Active Substance: OBINUTUZUMAB
     Dosage: C5D1
     Route: 042
     Dates: start: 20140519, end: 20140519
  11. BENDAMUSTINE [Suspect]
     Active Substance: BENDAMUSTINE
     Dosage: C3D1
     Route: 042
     Dates: start: 20140324, end: 20140324
  12. BENDAMUSTINE [Suspect]
     Active Substance: BENDAMUSTINE
     Dosage: C6D1
     Route: 042
     Dates: start: 20140616, end: 20140616
  13. NOVONORM [Concomitant]
     Active Substance: REPAGLINIDE
     Dosage: 0-0-2 PER DAY
     Route: 048
     Dates: start: 20140130, end: 20140130
  14. ZOPHREN [Concomitant]
     Active Substance: ONDANSETRON
     Indication: PROPHYLAXIS
     Route: 042
     Dates: start: 20140128, end: 20140131
  15. FLUDEX (FRANCE) [Concomitant]
     Route: 048
     Dates: start: 20140203
  16. FLUDEX (FRANCE) [Concomitant]
     Route: 048
     Dates: end: 20140127
  17. ACYCLOVIR. [Concomitant]
     Active Substance: ACYCLOVIR
     Indication: PROPHYLAXIS
     Route: 048
     Dates: start: 20140423
  18. OBINUTUZUMAB [Suspect]
     Active Substance: OBINUTUZUMAB
     Indication: CHRONIC LYMPHOCYTIC LEUKAEMIA
     Dosage: C1D1.?1000 MG IV ON DAYS 1/2 (SPLIT DOSE), 8 AND 15 OF CYCLE 1, AND ON DAY 1 OF CYCLES 2-6
     Route: 042
     Dates: start: 20140128, end: 20140128
  19. OBINUTUZUMAB [Suspect]
     Active Substance: OBINUTUZUMAB
     Dosage: C1D8
     Route: 042
     Dates: start: 20140204, end: 20140204
  20. NOVONORM [Concomitant]
     Active Substance: REPAGLINIDE
     Dosage: 2-1-0PER DAY
     Route: 048
     Dates: start: 20140129, end: 20140129
  21. METFORMIN [Concomitant]
     Active Substance: METFORMIN HYDROCHLORIDE
     Route: 048
     Dates: start: 20140220
  22. OBINUTUZUMAB [Suspect]
     Active Substance: OBINUTUZUMAB
     Dosage: C4D1
     Route: 042
     Dates: start: 20140422, end: 20140422
  23. BENDAMUSTINE [Suspect]
     Active Substance: BENDAMUSTINE
     Dosage: C2D1
     Route: 042
     Dates: start: 20140224, end: 20140224
  24. BENDAMUSTINE [Suspect]
     Active Substance: BENDAMUSTINE
     Dosage: C3D2
     Route: 042
     Dates: start: 20140325, end: 20140325
  25. NOVONORM [Concomitant]
     Active Substance: REPAGLINIDE
     Dosage: 2-1-2 PER DAY
     Route: 048
     Dates: start: 20140131
  26. LANTUS [Concomitant]
     Active Substance: INSULIN GLARGINE
     Route: 042
     Dates: start: 20140129, end: 20140130
  27. COVERAM [Concomitant]
     Active Substance: AMLODIPINE\PERINDOPRIL
     Route: 048
     Dates: start: 20140203
  28. BACTRIM [Concomitant]
     Active Substance: SULFAMETHOXAZOLE\TRIMETHOPRIM
     Indication: PROPHYLAXIS
     Route: 048
     Dates: start: 20140206, end: 20140422
  29. OBINUTUZUMAB [Suspect]
     Active Substance: OBINUTUZUMAB
     Dosage: C1D15
     Route: 042
     Dates: start: 20140211, end: 20140211
  30. BENDAMUSTINE [Suspect]
     Active Substance: BENDAMUSTINE
     Dosage: C1D2
     Route: 042
     Dates: start: 20140130, end: 20140130
  31. BENDAMUSTINE [Suspect]
     Active Substance: BENDAMUSTINE
     Dosage: C5D1
     Route: 042
     Dates: start: 20140519, end: 20140519
  32. BENDAMUSTINE [Suspect]
     Active Substance: BENDAMUSTINE
     Dosage: C5D2
     Route: 042
     Dates: start: 20140520, end: 20140520
  33. POLARAMINE [Concomitant]
     Active Substance: DEXCHLORPHENIRAMINE MALEATE
     Route: 042
     Dates: start: 20140211, end: 20140211
  34. FASTURTEC [Concomitant]
     Active Substance: RASBURICASE
     Indication: PROPHYLAXIS
     Route: 042
     Dates: start: 20140128, end: 20140130
  35. INSULIN [Concomitant]
     Active Substance: INSULIN NOS
     Route: 058
     Dates: start: 20140129, end: 20140130
  36. DEXERYL (FRANCE) [Concomitant]
     Active Substance: GLYCERIN\PARAFFIN
     Dosage: TRANSCUTANEOUS
     Route: 050
     Dates: start: 20140401, end: 20140716
  37. OBINUTUZUMAB [Suspect]
     Active Substance: OBINUTUZUMAB
     Dosage: C2D1
     Route: 042
     Dates: start: 20140224, end: 20140224
  38. OBINUTUZUMAB [Suspect]
     Active Substance: OBINUTUZUMAB
     Dosage: C3D1
     Route: 042
     Dates: start: 20140324, end: 20140324
  39. BENDAMUSTINE [Suspect]
     Active Substance: BENDAMUSTINE
     Dosage: C2D2
     Route: 042
     Dates: start: 20140225, end: 20140225
  40. BENDAMUSTINE [Suspect]
     Active Substance: BENDAMUSTINE
     Dosage: C4D2
     Route: 042
     Dates: start: 20140423, end: 20140423
  41. STAGID [Concomitant]
     Active Substance: METFORMIN PAMOATE
     Route: 048
     Dates: start: 20140131, end: 20140219
  42. BISOPROLOL [Concomitant]
     Active Substance: BISOPROLOL
     Indication: HYPERTENSION
     Route: 048
  43. SOLU-MEDROL [Concomitant]
     Active Substance: METHYLPREDNISOLONE SODIUM SUCCINATE
     Indication: PROPHYLAXIS
     Route: 042
     Dates: start: 20140128, end: 20140616
  44. PENTACARINAT [Concomitant]
     Active Substance: PENTAMIDINE ISETHIONATE
     Indication: PROPHYLAXIS
     Dosage: INTRANASAL
     Route: 050
     Dates: start: 20140423, end: 20140423
  45. OBINUTUZUMAB [Suspect]
     Active Substance: OBINUTUZUMAB
     Dosage: C6D1 (LAST DOSE PRIOR TO EVENT)
     Route: 042
     Dates: start: 20140616, end: 20140616
  46. BENDAMUSTINE [Suspect]
     Active Substance: BENDAMUSTINE
     Dosage: C4D1
     Route: 042
     Dates: start: 20140422, end: 20140422
  47. TAHOR [Concomitant]
     Active Substance: ATORVASTATIN CALCIUM
     Indication: DYSLIPIDAEMIA
     Route: 048
  48. NOVONORM [Concomitant]
     Active Substance: REPAGLINIDE
     Indication: DIABETES MELLITUS
     Dosage: 2-1-2 PER DAY
     Route: 048
     Dates: end: 20140128
  49. STAGID [Concomitant]
     Active Substance: METFORMIN PAMOATE
     Indication: DIABETES MELLITUS
     Route: 048
     Dates: end: 20140128
  50. FASTURTEC [Concomitant]
     Active Substance: RASBURICASE
     Route: 042
     Dates: start: 20140204, end: 20140204
  51. COVERAM [Concomitant]
     Active Substance: AMLODIPINE\PERINDOPRIL
     Route: 048
     Dates: end: 20140127
  52. METFORMIN [Concomitant]
     Active Substance: METFORMIN HYDROCHLORIDE
     Route: 048
     Dates: start: 20140424
  53. GRANOCYTE 34 [Concomitant]
     Active Substance: LENOGRASTIM
     Indication: PROPHYLAXIS
     Route: 058
     Dates: start: 20140206, end: 20140210

REACTIONS (2)
  - Squamous cell carcinoma [Recovered/Resolved]
  - Basal cell carcinoma [Recovered/Resolved]

NARRATIVE: CASE EVENT DATE: 20140826
